FAERS Safety Report 12137369 (Version 1)
Quarter: 2016Q1

REPORT INFORMATION
  Report Type: Spontaneous
  Country: FR (occurrence: FR)
  Receive Date: 20160302
  Receipt Date: 20160302
  Transmission Date: 20160526
  Serious: Yes (Other)
  Sender: FDA-Public Use
  Company Number: FR-CIPLA LTD.-2016FR01623

PATIENT

DRUGS (8)
  1. ZIDOVUDINE. [Suspect]
     Active Substance: ZIDOVUDINE
     Dosage: PREPARTUM
     Route: 064
  2. ZIDOVUDINE. [Suspect]
     Active Substance: ZIDOVUDINE
     Dosage: PREPARTUM, AT 12 WEEKS OF GESTATION
     Route: 064
  3. LAMIVUDINE. [Suspect]
     Active Substance: LAMIVUDINE
     Dosage: AT 19 WEEK OF GESTATION
     Route: 064
  4. DIDANOSINE. [Suspect]
     Active Substance: DIDANOSINE
     Dosage: AT 28 WEEK OF GESTATION
     Route: 064
  5. ZIDOVUDINE. [Suspect]
     Active Substance: ZIDOVUDINE
     Dosage: POSTPARTUM AT 6 WEEKS OF GESTATION
     Route: 065
  6. LAMIVUDINE. [Suspect]
     Active Substance: LAMIVUDINE
     Dosage: UNK
     Route: 064
  7. STAVUDINE. [Suspect]
     Active Substance: STAVUDINE
     Dosage: PREPARTUM AT ONSET
     Route: 064
  8. LAMIVUDINE. [Suspect]
     Active Substance: LAMIVUDINE
     Dosage: AT 28 WEEK OF GESTATION
     Route: 064

REACTIONS (2)
  - Hodgkin^s disease [Unknown]
  - Foetal exposure during pregnancy [Unknown]
